FAERS Safety Report 10031948 (Version 2)
Quarter: 2014Q1

REPORT INFORMATION
  Report Type: Spontaneous
  Country: US (occurrence: US)
  Receive Date: 20140324
  Receipt Date: 20140324
  Transmission Date: 20141002
  Serious: Yes (Other)
  Sender: FDA-Public Use
  Company Number: PHHY2014US028427

PATIENT
  Age: 44 Year
  Sex: Male

DRUGS (8)
  1. LIORESAL INTRATECAL [Suspect]
     Indication: MUSCLE SPASTICITY
     Dosage: 110 UG DAILY
     Route: 037
  2. LIORESAL INTRATECAL [Suspect]
     Dosage: 120 UG DAILY
     Route: 037
  3. LIORESAL INTRATECAL [Suspect]
     Dosage: 110 UG DAILY
     Route: 037
  4. LIORESAL INTRATECAL [Suspect]
     Dosage: 440 UG DAILY
     Route: 037
  5. LIORESAL INTRATECAL [Suspect]
     Dosage: 110 UG/DAY
     Route: 037
  6. CLONAZEPAM [Suspect]
     Dosage: DAILY
  7. HYDROCODONE [Suspect]
     Dosage: UNK UKN, PRN
  8. EFEXOR XR [Suspect]
     Dosage: 150 MG, QD

REACTIONS (4)
  - Gait disturbance [Recovering/Resolving]
  - Hypotonia [Recovering/Resolving]
  - Accidental overdose [Recovering/Resolving]
  - Incorrect dose administered [Recovering/Resolving]
